FAERS Safety Report 17711749 (Version 1)
Quarter: 2020Q2

REPORT INFORMATION
  Report Type: Spontaneous
  Country: CL (occurrence: CL)
  Receive Date: 20200427
  Receipt Date: 20200427
  Transmission Date: 20200714
  Serious: Yes (Hospitalization)
  Sender: FDA-Public Use
  Company Number: CL-STRIDES ARCOLAB LIMITED-2020SP005124

PATIENT
  Age: 79 Year
  Sex: Female

DRUGS (6)
  1. CIPROFLOXACIN. [Concomitant]
     Active Substance: CIPROFLOXACIN
     Indication: INFECTIVE AORTITIS
     Dosage: UNK
     Route: 065
  2. CIPROFLOXACIN. [Concomitant]
     Active Substance: CIPROFLOXACIN
     Indication: FISTULA
  3. METRONIDAZOLE. [Suspect]
     Active Substance: METRONIDAZOLE
     Indication: PSOAS ABSCESS
  4. METRONIDAZOLE. [Suspect]
     Active Substance: METRONIDAZOLE
     Indication: INFECTIVE AORTITIS
     Dosage: 500 MILLIGRAM, TID
     Route: 048
  5. METRONIDAZOLE. [Suspect]
     Active Substance: METRONIDAZOLE
     Indication: FISTULA
  6. CIPROFLOXACIN. [Concomitant]
     Active Substance: CIPROFLOXACIN
     Indication: PSOAS ABSCESS

REACTIONS (16)
  - Confusional state [Recovered/Resolved]
  - Vertigo [Recovered/Resolved]
  - Speech disorder [Recovered/Resolved]
  - Areflexia [Recovered/Resolved]
  - Burning sensation [Not Recovered/Not Resolved]
  - Sensory loss [Recovered/Resolved]
  - Dysmetria [Recovered/Resolved]
  - Dysarthria [Recovered/Resolved]
  - Gait inability [Recovered/Resolved]
  - Disorientation [Recovered/Resolved]
  - Dysdiadochokinesis [Recovered/Resolved]
  - Gait disturbance [Recovered/Resolved]
  - Neuropathy peripheral [Not Recovered/Not Resolved]
  - Neurotoxicity [Recovered/Resolved]
  - Ataxia [Recovered/Resolved]
  - Paraesthesia [Not Recovered/Not Resolved]
